FAERS Safety Report 18363917 (Version 1)
Quarter: 2020Q4

REPORT INFORMATION
  Report Type: Report from Study
  Country: CA (occurrence: CA)
  Receive Date: 20201009
  Receipt Date: 20201009
  Transmission Date: 20210114
  Serious: Yes (Other)
  Sender: FDA-Public Use
  Company Number: CA-JNJFOC-20201004454

PATIENT
  Age: 14 Year
  Sex: Male
  Weight: 47.2 kg

DRUGS (1)
  1. REMICADE [Suspect]
     Active Substance: INFLIXIMAB
     Indication: COLITIS ULCERATIVE
     Dosage: ON 01-OCT-2020, THE PATIENT RECEIVED 48TH 600 MG INFLIXIMAB INFUSION AND PARTIAL HARVEY-BRADSHAW WAS
     Route: 042
     Dates: start: 20170912

REACTIONS (1)
  - Haematochezia [Unknown]

NARRATIVE: CASE EVENT DATE: 20200930
